FAERS Safety Report 16232278 (Version 1)
Quarter: 2019Q2

REPORT INFORMATION
  Report Type: Spontaneous
  Country: US (occurrence: US)
  Receive Date: 20190424
  Receipt Date: 20190424
  Transmission Date: 20190711
  Serious: Yes (Other)
  Sender: FDA-Public Use
  Company Number: US-ROCHE-2305465

PATIENT
  Age: 46 Year
  Sex: Female

DRUGS (3)
  1. RO6958688 (T-CELL BISPECIFIC MONOCLONAL ANTIBODY) [Suspect]
     Active Substance: CIBISATAMAB
     Indication: PRODUCT USED FOR UNKNOWN INDICATION
     Route: 065
     Dates: start: 201802, end: 201808
  2. TECENTRIQ [Suspect]
     Active Substance: ATEZOLIZUMAB
     Indication: PRODUCT USED FOR UNKNOWN INDICATION
     Route: 041
     Dates: start: 201802, end: 201808
  3. BCG VACCINE LIVE (DANISH 1331) [Concomitant]
     Route: 065

REACTIONS (1)
  - Computerised tomogram abnormal [Unknown]

NARRATIVE: CASE EVENT DATE: 20190104
